FAERS Safety Report 9465016 (Version 2)
Quarter: 2013Q3

REPORT INFORMATION
  Report Type: Spontaneous
  Country: US (occurrence: US)
  Receive Date: 20130819
  Receipt Date: 20130830
  Transmission Date: 20140515
  Serious: Yes (Hospitalization, Other)
  Sender: FDA-Public Use
  Company Number: US-GILEAD-2013-0081544

PATIENT
  Sex: Male

DRUGS (2)
  1. LETAIRIS [Suspect]
     Indication: PORTOPULMONARY HYPERTENSION
     Dosage: 10 MG, QD
     Route: 048
     Dates: start: 20110105
  2. ADCIRCA [Concomitant]
     Indication: PULMONARY ARTERIAL HYPERTENSION

REACTIONS (2)
  - Hepatitis C [Unknown]
  - Pulmonary arterial pressure increased [Unknown]
